FAERS Safety Report 16338552 (Version 4)
Quarter: 2019Q3

REPORT INFORMATION
  Report Type: Spontaneous
  Country: JP (occurrence: JP)
  Receive Date: 20190521
  Receipt Date: 20190731
  Transmission Date: 20191004
  Serious: Yes (Other)
  Sender: FDA-Public Use
  Company Number: JP-JNJFOC-20190520292

PATIENT
  Age: 75 Year
  Sex: Female
  Weight: 34.5 kg

DRUGS (3)
  1. DEXAMETHASONE. [Concomitant]
     Active Substance: DEXAMETHASONE
     Indication: PLASMA CELL MYELOMA
     Route: 065
  2. DARZALEX [Suspect]
     Active Substance: DARATUMUMAB
     Indication: PLASMA CELL MYELOMA
     Dosage: 100MG OR 400MG
     Route: 041
  3. VELCADE [Suspect]
     Active Substance: BORTEZOMIB
     Indication: PLASMA CELL MYELOMA
     Route: 065

REACTIONS (4)
  - Bone marrow failure [Unknown]
  - Therapeutic response decreased [Unknown]
  - Crossmatch incompatible [Recovered/Resolved]
  - Coombs indirect test positive [Recovered/Resolved]

NARRATIVE: CASE EVENT DATE: 20181126
